FAERS Safety Report 9314206 (Version 5)
Quarter: 2014Q2

REPORT INFORMATION
  Report Type: Report from Study
  Country: JP (occurrence: JP)
  Receive Date: 20130529
  Receipt Date: 20140529
  Transmission Date: 20141212
  Serious: Yes (Other)
  Sender: FDA-Public Use
  Company Number: JP-PFIZER INC-2013162313

PATIENT
  Age: 72 Year
  Sex: Female
  Weight: 36.4 kg

DRUGS (8)
  1. XALKORI [Suspect]
     Indication: NON-SMALL CELL LUNG CANCER
     Dosage: 250 MG, 2X/DAY
     Route: 048
     Dates: start: 20130325, end: 20130423
  2. XALKORI [Suspect]
     Dosage: 200 MG, 2X/DAY
     Route: 048
     Dates: start: 20130507, end: 20130723
  3. XALKORI [Suspect]
     Dosage: 250 MG, 1X/DAY
     Route: 048
     Dates: start: 20130724, end: 20130820
  4. XALKORI [Suspect]
     Dosage: 200 MG, 1X/DAY
     Route: 048
     Dates: start: 20130910
  5. NU LOTAN [Concomitant]
     Dosage: 25 MG, 1X/DAY
     Route: 048
     Dates: start: 201212
  6. LASIX [Concomitant]
     Dosage: 20 MG, 1X/DAY
     Route: 048
     Dates: start: 20121227
  7. TAKEPRON OD [Concomitant]
     Dosage: 15 MG, 1X/DAY
     Route: 048
     Dates: start: 20130219
  8. MAGMITT [Concomitant]
     Dosage: 330 MG, 2X/DAY
     Route: 048
     Dates: start: 20130212

REACTIONS (2)
  - Muscle atrophy [Recovering/Resolving]
  - Blood creatine phosphokinase increased [Recovering/Resolving]
